FAERS Safety Report 13720820 (Version 1)
Quarter: 2017Q3

REPORT INFORMATION
  Report Type: Spontaneous
  Country: US (occurrence: US)
  Receive Date: 20170705
  Receipt Date: 20170705
  Transmission Date: 20171127
  Serious: Yes (Other)
  Sender: FDA-Public Use
  Company Number: None

PATIENT
  Age: 43 Year
  Sex: Male
  Weight: 98 kg

DRUGS (1)
  1. OLANZAPIN [Suspect]
     Active Substance: OLANZAPINE
     Dates: start: 20170509, end: 20170509

REACTIONS (3)
  - Ocular icterus [None]
  - Musculoskeletal disorder [None]
  - Oral disorder [None]

NARRATIVE: CASE EVENT DATE: 20170705
